FAERS Safety Report 18278969 (Version 2)
Quarter: 2020Q3

REPORT INFORMATION
  Report Type: Spontaneous
  Country: US (occurrence: US)
  Receive Date: 20200917
  Receipt Date: 20200918
  Transmission Date: 20201103
  Serious: Yes (Other)
  Sender: FDA-Public Use
  Company Number: US-ASTRAZENECA-2020SF16242

PATIENT
  Weight: 56.7 kg

DRUGS (4)
  1. TAGRISSO [Suspect]
     Active Substance: OSIMERTINIB
     Indication: NON-SMALL CELL LUNG CANCER
     Route: 048
  2. TAGRISSO [Suspect]
     Active Substance: OSIMERTINIB
     Indication: NON-SMALL CELL LUNG CANCER
     Route: 048
     Dates: start: 2015, end: 2019
  3. CARVEDILOL. [Concomitant]
     Active Substance: CARVEDILOL
  4. TAGRISSO [Suspect]
     Active Substance: OSIMERTINIB
     Indication: NON-SMALL CELL LUNG CANCER
     Route: 048

REACTIONS (6)
  - Metastases to central nervous system [Unknown]
  - Brain neoplasm [Unknown]
  - Malignant neoplasm progression [Unknown]
  - Aphonia [Unknown]
  - Cardiac disorder [Unknown]
  - Vocal cord disorder [Unknown]
